FAERS Safety Report 20428958 (Version 1)
Quarter: 2022Q1

REPORT INFORMATION
  Report Type: Spontaneous
  Country: JP (occurrence: JP)
  Receive Date: 20220204
  Receipt Date: 20220204
  Transmission Date: 20220424
  Serious: Yes (Hospitalization)
  Sender: FDA-Public Use
  Company Number: JP-STRIDES ARCOLAB LIMITED-2022SP001000

PATIENT
  Age: 77 Year
  Sex: Female
  Weight: 59 kg

DRUGS (12)
  1. VERAPAMIL [Suspect]
     Active Substance: VERAPAMIL HYDROCHLORIDE
     Indication: Tachyarrhythmia
     Dosage: 5 MILLIGRAM, UNKNOWN
     Route: 065
  2. VERAPAMIL [Suspect]
     Active Substance: VERAPAMIL HYDROCHLORIDE
     Indication: Tachycardia
  3. BISOPROLOL [Suspect]
     Active Substance: BISOPROLOL
     Indication: Palpitations
     Dosage: UNK
     Route: 065
  4. BISOPROLOL [Suspect]
     Active Substance: BISOPROLOL
     Indication: Tachycardia
     Dosage: UNK (BISOPROLOL PATCH  RESTARTED)
     Route: 065
  5. LANDIOLOL [Suspect]
     Active Substance: LANDIOLOL
     Indication: Tachyarrhythmia
     Dosage: 7 MICROGRAM/KILOGRAM, UNKNOWN (1 MINUTE)
     Route: 065
  6. REMIFENTANIL [Suspect]
     Active Substance: REMIFENTANIL
     Indication: General anaesthesia
     Dosage: UNK, (INITIAL DOSAGE NOT STATED)
     Route: 065
  7. REMIFENTANIL [Suspect]
     Active Substance: REMIFENTANIL
     Dosage: 0.3 MICROGRAM/KILOGRAM, UNKNOWN (ANAESTHESIA MAINTAINED) (1 MINUTE)
     Route: 065
  8. REMIFENTANIL [Suspect]
     Active Substance: REMIFENTANIL
     Dosage: UNK, DOSE DECREASED
     Route: 065
  9. PHENYLEPHRINE [Concomitant]
     Active Substance: PHENYLEPHRINE HYDROCHLORIDE
     Indication: Tachyarrhythmia
     Dosage: UNK
     Route: 065
  10. ROCURONIUM [Concomitant]
     Active Substance: ROCURONIUM BROMIDE
     Indication: Product used for unknown indication
     Dosage: UNK
     Route: 065
  11. PROPOFOL [Concomitant]
     Active Substance: PROPOFOL
     Indication: General anaesthesia
     Dosage: UNK, (INITIAL DOSAGE NOT STATED)
     Route: 065
  12. PROPOFOL [Concomitant]
     Active Substance: PROPOFOL
     Dosage: 2.2 MICROGRAM PER MILLIGRAM, UNK (ANESTHESIA MAINTAINED; VIA TARGETED-CONTROLLED INFUSION)
     Route: 065

REACTIONS (3)
  - Trigemino-cardiac reflex [Recovered/Resolved]
  - Bradycardia [Recovered/Resolved]
  - Off label use [Unknown]
